FAERS Safety Report 7469585-5 (Version None)
Quarter: 2011Q2

REPORT INFORMATION
  Report Type: 
  Country: None (occurrence: None)
  Receive Date: 20110510
  Receipt Date: 20080214
  Transmission Date: 20111010
  Serious: Yes (Death, Hospitalization, Other)
  Sender: FDA-Public Use
  Company Number: US-BAYER-2011-010849

PATIENT
  Age: 75 Year
  Sex: Female
  Weight: 55 kg

DRUGS (20)
  1. MAXZIDE [Concomitant]
     Dosage: 50 MG, QD
     Route: 048
  2. PLASMA [Concomitant]
     Dosage: 2 U, UNK
     Route: 042
  3. ALBUMIN HUMAN [ALBUMEN] [Concomitant]
     Dosage: 200 MG, UNK, PUMP PRIME
     Route: 042
     Dates: start: 20060125, end: 20060125
  4. COUMADIN [Concomitant]
     Dosage: 2.5 MG DAILY EXCEPT MONDAYS AND FRIDAYS
     Route: 048
  5. PLATELETS [Concomitant]
     Dosage: 10 U, UNK
     Route: 042
  6. CARDIZEM [Concomitant]
     Dosage: 180 MG, QD
     Route: 048
  7. LIPITOR [Concomitant]
     Dosage: 20 MG, QD
     Route: 048
  8. LASIX [Concomitant]
  9. HEPARIN [Concomitant]
     Dosage: 7000 U, UNK
     Route: 042
     Dates: start: 20060125
  10. ZINACEF [Concomitant]
     Dosage: 1.5 G, UNK
     Route: 042
     Dates: start: 20060125, end: 20060125
  11. TRASYLOL [Suspect]
     Indication: CORONARY ARTERY BYPASS
     Dosage: 200 ML, UNK, LOADING DOSE FOLLOWED BY INFUSION
     Route: 042
     Dates: start: 20060125, end: 20060125
  12. TRASYLOL [Suspect]
     Indication: MITRAL VALVE REPLACEMENT
  13. LANOXIN [Concomitant]
     Dosage: 0.125 MG, QD
     Route: 048
  14. KLONOPIN [Concomitant]
     Dosage: 0.5 MG AT BEDTIME
     Route: 048
  15. LEVOPHED [Concomitant]
     Dosage: TITRATING FOR SYSTOLIC BLOOD PRESSURE 90 +#8211; 100 MMHG
     Route: 042
     Dates: start: 20060125, end: 20060213
  16. BUMEX [Concomitant]
  17. TRASYLOL [Suspect]
     Indication: COX-MAZE PROCEDURE
  18. SLOW-K [Concomitant]
     Dosage: 8 MILLI EQUIVALENTS, 2 TABLETS THREE TIMES A DAY
     Route: 048
  19. MAGNESIUM SULFATE [Concomitant]
     Dosage: UNK
     Route: 042
     Dates: start: 20060125
  20. RED BLOOD CELLS, CONCENTRATED [Concomitant]
     Dosage: 2 U, UNK
     Route: 042

REACTIONS (14)
  - RESPIRATORY FAILURE [None]
  - DEATH [None]
  - RENAL FAILURE [None]
  - MULTI-ORGAN FAILURE [None]
  - RENAL IMPAIRMENT [None]
  - STRESS [None]
  - FEAR [None]
  - PAIN [None]
  - EMOTIONAL DISTRESS [None]
  - UNEVALUABLE EVENT [None]
  - INJURY [None]
  - RENAL INJURY [None]
  - ANXIETY [None]
  - CARDIAC FAILURE CONGESTIVE [None]
